FAERS Safety Report 9498965 (Version 1)
Quarter: 2013Q3

REPORT INFORMATION
  Report Type: Spontaneous
  Country: US (occurrence: US)
  Receive Date: 20130904
  Receipt Date: 20130904
  Transmission Date: 20140515
  Serious: Yes (Death, Other)
  Sender: FDA-Public Use
  Company Number: US-BAXTER-2013BAX034193

PATIENT
  Age: 6 Year
  Sex: Female

DRUGS (4)
  1. CEFTRIAXONE INJECTION, USP (IN DEXTROSE) [Suspect]
     Indication: INFECTION
     Route: 065
  2. VANCOMYCIN INJECTION, USP [Suspect]
     Indication: INFECTION
     Route: 065
  3. DOXYCYCLINE [Suspect]
     Indication: INFECTION
     Route: 065
  4. ACETAMINOPHEN [Concomitant]
     Indication: VIRAL INFECTION
     Route: 065

REACTIONS (7)
  - Infection [Fatal]
  - General physical health deterioration [Not Recovered/Not Resolved]
  - Brain oedema [Not Recovered/Not Resolved]
  - Brain herniation [Not Recovered/Not Resolved]
  - Mental status changes [Not Recovered/Not Resolved]
  - Posturing [Not Recovered/Not Resolved]
  - Pupil fixed [Not Recovered/Not Resolved]
